FAERS Safety Report 10954008 (Version 5)
Quarter: 2016Q3

REPORT INFORMATION
  Report Type: Spontaneous
  Country: US (occurrence: US)
  Receive Date: 20150325
  Receipt Date: 20160821
  Transmission Date: 20161109
  Serious: Yes (Hospitalization, Other)
  Sender: FDA-Public Use
  Company Number: US-009507513-1201USA00122

PATIENT
  Sex: Male

DRUGS (5)
  1. PAXIL [Concomitant]
     Active Substance: PAROXETINE HYDROCHLORIDE
     Indication: DEPRESSION
     Dosage: UNK, UNKNOWN
     Route: 065
     Dates: start: 1991
  2. PROPECIA [Suspect]
     Active Substance: FINASTERIDE
     Indication: ALOPECIA
     Dosage: 1 MG, QD
     Route: 048
     Dates: start: 20000802, end: 2011
  3. CARVEDILOL. [Concomitant]
     Active Substance: CARVEDILOL
     Indication: HYPERTENSION
     Dosage: UNK, UNKNOWN
     Route: 065
     Dates: start: 1999
  4. LOVASTATIN. [Suspect]
     Active Substance: LOVASTATIN
     Indication: PRODUCT USED FOR UNKNOWN INDICATION
     Dosage: UNK, UNKNOWN
     Route: 048
  5. FLEXERIL [Suspect]
     Active Substance: CYCLOBENZAPRINE HYDROCHLORIDE
     Indication: PRODUCT USED FOR UNKNOWN INDICATION
     Dosage: UNK, UNKNOWN
     Route: 048

REACTIONS (25)
  - Pancreatitis [Unknown]
  - Depression [Not Recovered/Not Resolved]
  - Self esteem decreased [Not Recovered/Not Resolved]
  - Loss of libido [Unknown]
  - Sinusitis [Unknown]
  - Gastrooesophageal reflux disease [Unknown]
  - Anxiety [Not Recovered/Not Resolved]
  - Marital problem [Not Recovered/Not Resolved]
  - Serotonin syndrome [Recovering/Resolving]
  - Quality of life decreased [Unknown]
  - Otitis media [Recovering/Resolving]
  - Pancreatic enzymes increased [Unknown]
  - Post-traumatic stress disorder [Unknown]
  - Adverse event [Unknown]
  - Cognitive disorder [Not Recovered/Not Resolved]
  - Fibromyalgia [Unknown]
  - Fatigue [Unknown]
  - Erectile dysfunction [Unknown]
  - Pain [Unknown]
  - Blood testosterone decreased [Unknown]
  - Diarrhoea [Recovered/Resolved]
  - Alcohol abuse [Unknown]
  - Male orgasmic disorder [Unknown]
  - Panic attack [Not Recovered/Not Resolved]
  - Sexual dysfunction [Not Recovered/Not Resolved]

NARRATIVE: CASE EVENT DATE: 2000
